FAERS Safety Report 11583568 (Version 1)
Quarter: 2015Q3

REPORT INFORMATION
  Report Type: Spontaneous
  Country: US (occurrence: None)
  Receive Date: 20150930
  Receipt Date: 20150930
  Transmission Date: 20151125
  Serious: No
  Sender: FDA-Public Use
  Company Number: None

PATIENT
  Age: 53 Year
  Sex: Female
  Weight: 97.98 kg

DRUGS (1)
  1. ANASTROZOLE 1 MG [Suspect]
     Active Substance: ANASTROZOLE
     Route: 048
     Dates: start: 20150401

REACTIONS (1)
  - Pain in extremity [None]

NARRATIVE: CASE EVENT DATE: 20150929
